FAERS Safety Report 6254396-9 (Version None)
Quarter: 2009Q3

REPORT INFORMATION
  Report Type: 
  Country: None (occurrence: None)
  Receive Date: 20090702
  Receipt Date: 20090617
  Transmission Date: 20100115
  Serious: Yes (Hospitalization, Other)
  Sender: FDA-Public Use
  Company Number: US-BIOGENIDEC-2009BI010623

PATIENT
  Age: 29 Year
  Sex: Female
  Weight: 136 kg

DRUGS (5)
  1. TYSABRI [Suspect]
     Indication: MULTIPLE SCLEROSIS
     Route: 042
     Dates: start: 20081117, end: 20090325
  2. TYSABRI [Suspect]
     Route: 042
     Dates: start: 20081117, end: 20090325
  3. TYSABRI [Suspect]
     Route: 042
     Dates: start: 20070215, end: 20070531
  4. TYSABRI [Suspect]
     Route: 042
     Dates: start: 20080213, end: 20080522
  5. PREDNISONE [Concomitant]
     Indication: ADRENAL INSUFFICIENCY
     Dates: start: 20060601

REACTIONS (10)
  - ADRENAL DISORDER [None]
  - CHILLS [None]
  - DELUSION [None]
  - LOSS OF CONSCIOUSNESS [None]
  - PAIN [None]
  - PYREXIA [None]
  - RENAL INJURY [None]
  - SEPSIS [None]
  - THROMBOSIS [None]
  - URINARY TRACT INFECTION [None]
